FAERS Safety Report 18468786 (Version 1)
Quarter: 2020Q4

REPORT INFORMATION
  Report Type: Spontaneous
  Country: US (occurrence: US)
  Receive Date: 20201105
  Receipt Date: 20201105
  Transmission Date: 20210114
  Serious: Yes (Other)
  Sender: FDA-Public Use
  Company Number: None

PATIENT
  Age: 73 Year
  Sex: Male
  Weight: 71.1 kg

DRUGS (9)
  1. CATAPLEX B-CORE [Concomitant]
  2. POTASSIUM GLUCONATE [Concomitant]
     Active Substance: POTASSIUM GLUCONATE
  3. NATTOKINASE [Concomitant]
     Active Substance: NATTOKINASE
  4. CATAPLEX E2 [Concomitant]
  5. PNEUMOTROPHIN PMG [Concomitant]
  6. TRACE MINERAL B12 [Concomitant]
  7. ELIQUIS [Suspect]
     Active Substance: APIXABAN
     Indication: CARDIAC ABLATION
     Route: 048
     Dates: start: 20200921, end: 20201025
  8. COD LIVER OIL [Concomitant]
     Active Substance: COD LIVER OIL
  9. CYRUTA PLUS [Concomitant]

REACTIONS (1)
  - Rash [None]

NARRATIVE: CASE EVENT DATE: 20201002
